FAERS Safety Report 14569269 (Version 1)
Quarter: 2018Q1

REPORT INFORMATION
  Report Type: Spontaneous
  Country: US (occurrence: US)
  Receive Date: 20180223
  Receipt Date: 20180223
  Transmission Date: 20180509
  Serious: Yes (Hospitalization)
  Sender: FDA-Public Use
  Company Number: None

PATIENT
  Age: 52 Year
  Weight: 68 kg

DRUGS (2)
  1. DOXIL [Suspect]
     Active Substance: DOXORUBICIN HYDROCHLORIDE
     Indication: OVARIAN CANCER
     Dosage: 46 MG EVERY 5 WEEKS IV
     Route: 042
     Dates: start: 20170310, end: 20180216
  2. DOXIL [Suspect]
     Active Substance: DOXORUBICIN HYDROCHLORIDE
     Indication: UTERINE CANCER
     Dosage: 46 MG EVERY 5 WEEKS IV
     Route: 042
     Dates: start: 20170310, end: 20180216

REACTIONS (2)
  - Laryngeal discomfort [None]
  - Throat tightness [None]

NARRATIVE: CASE EVENT DATE: 20180216
